FAERS Safety Report 10489950 (Version 1)
Quarter: 2014Q4

REPORT INFORMATION
  Report Type: Spontaneous
  Country: CA (occurrence: CA)
  Receive Date: 20141002
  Receipt Date: 20141002
  Transmission Date: 20150528
  Serious: Yes (Other)
  Sender: FDA-Public Use
  Company Number: CA-009507513-1410CAN000323

PATIENT

DRUGS (2)
  1. TEMOZOLOMIDE. [Suspect]
     Active Substance: TEMOZOLOMIDE
     Indication: PANCREATIC NEUROENDOCRINE TUMOUR
     Dosage: 200 MG/M2, TWICE A DAY ON DAYS 10-14 EVERY 28 DAYS
     Route: 048
  2. CAPECITABINE. [Suspect]
     Active Substance: CAPECITABINE
     Indication: PANCREATIC NEUROENDOCRINE TUMOUR
     Dosage: 1500 MG/M2 ON DAYS 1-14

REACTIONS (2)
  - Drug tolerance decreased [Unknown]
  - Myocardial infarction [Unknown]
